FAERS Safety Report 17260710 (Version 1)
Quarter: 2020Q1

REPORT INFORMATION
  Report Type: Spontaneous
  Country: US (occurrence: US)
  Receive Date: 20200113
  Receipt Date: 20200113
  Transmission Date: 20200409
  Serious: No
  Sender: FDA-Public Use
  Company Number: US-CIPLA LTD.-2019US02817

PATIENT

DRUGS (2)
  1. ALPRAZOLAM. [Concomitant]
     Active Substance: ALPRAZOLAM
     Indication: PANIC ATTACK
     Dosage: 0.25 MILLIGRAM, AS NEEDED (TABLETS)
     Route: 065
  2. SALBUTAMOL/IPRATROPIUM [Suspect]
     Active Substance: ALBUTEROL\IPRATROPIUM
     Indication: CHRONIC OBSTRUCTIVE PULMONARY DISEASE
     Dosage: UNK, 0.5MG TO 3MG/1ML BETWEEN 4 AND 7 HOURS
     Route: 065
     Dates: start: 201903

REACTIONS (3)
  - Product substitution issue [Unknown]
  - Hypoaesthesia oral [Not Recovered/Not Resolved]
  - Liquid product physical issue [Unknown]
